FAERS Safety Report 4289592-3 (Version None)
Quarter: 2004Q1

REPORT INFORMATION
  Report Type: 
  Country: None (occurrence: None)
  Receive Date: 20040126
  Receipt Date: 20030213
  Transmission Date: 20041129
  Serious: Yes (Death)
  Sender: FDA-Public Use
  Company Number: 321367

PATIENT
  Age: 67 Year
  Sex: Male

DRUGS (3)
  1. TORADOL [Suspect]
     Indication: DRUG USE FOR UNKNOWN INDICATION
     Dosage: INTRAVENOUS
     Route: 042
  2. CAPTOPRIL [Concomitant]
  3. CARDIZEM [Concomitant]

REACTIONS (2)
  - ANAPHYLACTIC SHOCK [None]
  - ANOXIC ENCEPHALOPATHY [None]
